FAERS Safety Report 6207530-0 (Version None)
Quarter: 2009Q2

REPORT INFORMATION
  Report Type: 
  Country: None (occurrence: None)
  Receive Date: 20090528
  Receipt Date: 20090521
  Transmission Date: 20091009
  Serious: Yes (Death)
  Sender: FDA-Public Use
  Company Number: US-NAPPMUNDI-USA_2009_0037350

PATIENT
  Age: 47 Year
  Sex: Male

DRUGS (4)
  1. MS CONTIN [Suspect]
     Indication: PAIN
     Dosage: UNK MG, SINGLE
     Route: 048
  2. KLONOPIN [Concomitant]
     Indication: ANXIETY
     Dosage: 0.5 MG, TID
     Route: 048
     Dates: start: 20080701
  3. PROZAC                             /00724401/ [Concomitant]
     Indication: DEPRESSION
     Dosage: 20 MG, DAILY
     Dates: start: 20081001
  4. PERCOCET [Concomitant]
     Indication: PAIN
     Dosage: 5 MG, Q4H PRN
     Route: 048
     Dates: start: 20080501

REACTIONS (2)
  - DEATH [None]
  - INTENTIONAL OVERDOSE [None]
